FAERS Safety Report 25846849 (Version 2)
Quarter: 2025Q3

REPORT INFORMATION
  Report Type: Report from Study
  Country: US (occurrence: US)
  Receive Date: 20250925
  Receipt Date: 20250926
  Transmission Date: 20251021
  Serious: No
  Sender: BRISTOL-MYERS SQUIBB COMPANY
  Company Number: US-BRISTOL-MYERS SQUIBB COMPANY-2025-131689

PATIENT
  Age: 83 Year
  Sex: Female
  Weight: 54 kg

DRUGS (1)
  1. ELIQUIS [Suspect]
     Active Substance: APIXABAN
     Indication: Deep vein thrombosis
     Dates: start: 20250922

REACTIONS (4)
  - Product dose omission issue [Unknown]
  - Expired product administered [Unknown]
  - Prescription drug used without a prescription [Unknown]
  - Product availability issue [Unknown]
